FAERS Safety Report 19847265 (Version 1)
Quarter: 2021Q3

REPORT INFORMATION
  Report Type: Report from Study
  Country: IT (occurrence: IT)
  Receive Date: 20210917
  Receipt Date: 20210917
  Transmission Date: 20211014
  Serious: Yes (Hospitalization)
  Sender: FDA-Public Use
  Company Number: IT-MYLANLABS-2021M1062145

PATIENT
  Age: 38 Year
  Sex: Female
  Weight: 45 kg

DRUGS (3)
  1. PARACETAMOL [Suspect]
     Active Substance: ACETAMINOPHEN
     Indication: ANXIETY
     Dosage: 10 DOSAGE FORM, TOTAL
     Route: 048
  2. DELORAZEPAM [Concomitant]
     Active Substance: DELORAZEPAM
     Indication: ANXIETY
     Dosage: 52 GTT DROPS, QD
     Route: 048
  3. LARGACTIL                          /00011901/ [Concomitant]
     Active Substance: CHLORPROMAZINE
     Indication: SEDATION
     Dosage: 100 MILLIGRAM, QD
     Route: 048

REACTIONS (1)
  - Drug abuse [Recovered/Resolved]

NARRATIVE: CASE EVENT DATE: 20210414
